FAERS Safety Report 7621456-7 (Version None)
Quarter: 2011Q3

REPORT INFORMATION
  Report Type: 
  Country: None (occurrence: None)
  Receive Date: 20110719
  Receipt Date: 20110707
  Transmission Date: 20111222
  Serious: Yes (Other)
  Sender: FDA-Public Use
  Company Number: BR-AMGEN-BRACT2011031368

PATIENT
  Age: 81 Year
  Sex: Female

DRUGS (5)
  1. CALCIUM CARBONATE [Concomitant]
  2. ANASTRAZOL RONTAG [Concomitant]
  3. VITAMIN D [Concomitant]
  4. DENOSUMAB [Suspect]
     Indication: METASTASES TO BONE
     Dosage: 120 MG, QMO
     Route: 058
     Dates: start: 20090820
  5. ASPIRIN [Concomitant]

REACTIONS (1)
  - OSTEONECROSIS OF JAW [None]
